FAERS Safety Report 5200857-0 (Version None)
Quarter: 2007Q1

REPORT INFORMATION
  Report Type: 
  Country: None (occurrence: None)
  Receive Date: 20070108
  Receipt Date: 20070103
  Transmission Date: 20070707
  Serious: Yes (Other)
  Sender: FDA-Public Use
  Company Number: 2007UW00205

PATIENT
  Age: 70 Year
  Sex: Male
  Weight: 83.9 kg

DRUGS (4)
  1. ZOLADEX [Suspect]
     Indication: PROSTATE CANCER
     Route: 058
     Dates: start: 20061001
  2. FELODIPINE [Concomitant]
  3. LOVASTATIN [Concomitant]
  4. FUROSEMIDE [Concomitant]

REACTIONS (1)
  - DEEP VEIN THROMBOSIS [None]
